FAERS Safety Report 25678017 (Version 1)
Quarter: 2025Q3

REPORT INFORMATION
  Report Type: Spontaneous
  Country: US (occurrence: US)
  Receive Date: 20250813
  Receipt Date: 20250813
  Transmission Date: 20251021
  Serious: No
  Sender: INCYTE
  Company Number: US-EVENT-003822

PATIENT
  Age: 70 Year

DRUGS (1)
  1. OPZELURA [Suspect]
     Active Substance: RUXOLITINIB PHOSPHATE
     Indication: Vitiligo

REACTIONS (2)
  - Vitiligo [Unknown]
  - Therapeutic product effect incomplete [Unknown]
